FAERS Safety Report 12181568 (Version 1)
Quarter: 2016Q1

REPORT INFORMATION
  Report Type: Other
  Country: GB (occurrence: GB)
  Receive Date: 20160315
  Receipt Date: 20160315
  Transmission Date: 20160526
  Serious: Yes (Other)
  Sender: FDA-Public Use
  Company Number: GB-MYLANLABS-2016M1010262

PATIENT

DRUGS (4)
  1. CISPLATIN. [Suspect]
     Active Substance: CISPLATIN
     Dosage: 140 MG, UNK (140 MG, CYCLIC (CYCLE 1))
     Dates: start: 20151209
  2. CISPLATIN. [Suspect]
     Active Substance: CISPLATIN
     Dosage: 140 MG, UNK (140 MG, CYCLIC (CYCLE 2))
     Dates: start: 20160117
  3. ALIMTA [Suspect]
     Active Substance: PEMETREXED DISODIUM
     Dosage: 975 MG, UNK (CYCLE 2, 975 MG, 100 %)
     Dates: start: 20160117
  4. ALIMTA [Suspect]
     Active Substance: PEMETREXED DISODIUM
     Dosage: 975 MG, UNK (CYCLE 1, 975 MG, 100 %)
     Dates: start: 20151209

REACTIONS (1)
  - Retinopathy [Unknown]
